FAERS Safety Report 4840607-0 (Version None)
Quarter: 2005Q4

REPORT INFORMATION
  Report Type: 
  Country: None (occurrence: None)
  Receive Date: 20051129
  Receipt Date: 20051129
  Transmission Date: 20060501
  Serious: Yes (Death, Hospitalization)
  Sender: FDA-Public Use
  Company Number: None

PATIENT
  Sex: Male
  Weight: 102.3 kg

DRUGS (7)
  1. TEMOZOLOMIDE [Suspect]
     Indication: GLIOBLASTOMA MULTIFORME
     Dosage: SEE IMAGE
     Dates: start: 20050926, end: 20051104
  2. TEMOZOLOMIDE [Suspect]
     Indication: GLIOBLASTOMA MULTIFORME
     Dosage: SEE IMAGE
     Dates: start: 20050926
  3. IRINOTECAN [Suspect]
     Dosage: SEE IMAGE
  4. RADITIATION THERAPY [Suspect]
     Dosage: SEE IMAGE
  5. DECADRON [Concomitant]
  6. DILANTIN [Concomitant]
  7. LIPITOR [Concomitant]

REACTIONS (13)
  - ASTHENIA [None]
  - BALANCE DISORDER [None]
  - CHILLS [None]
  - CULTURE URINE POSITIVE [None]
  - DECREASED APPETITE [None]
  - ESCHERICHIA INFECTION [None]
  - PNEUMONIA [None]
  - PROSTATITIS [None]
  - PYREXIA [None]
  - RASH ERYTHEMATOUS [None]
  - RASH MACULO-PAPULAR [None]
  - SOMNOLENCE [None]
  - URINARY TRACT INFECTION [None]
